FAERS Safety Report 7777420-0 (Version None)
Quarter: 2011Q3

REPORT INFORMATION
  Report Type: 
  Country: None (occurrence: None)
  Receive Date: 20110926
  Receipt Date: 20110915
  Transmission Date: 20111222
  Serious: Yes (Hospitalization, Other)
  Sender: FDA-Public Use
  Company Number: US-NOVOPROD-333357

PATIENT
  Age: 71 Year
  Sex: Male
  Weight: 98.322 kg

DRUGS (18)
  1. DILTIAZEM [Concomitant]
     Indication: PRODUCT USED FOR UNKNOWN INDICATION
     Dosage: (DILTIAZEM CR) 240 MG, QD
     Dates: end: 20110804
  2. ACTOS [Concomitant]
     Dosage: 30 MG, QD
     Dates: end: 20110804
  3. ASPIRIN [Concomitant]
     Indication: PRODUCT USED FOR UNKNOWN INDICATION
     Dosage: 325 UNK, UNK
     Dates: end: 20110804
  4. CRESTOR [Concomitant]
     Indication: PRODUCT USED FOR UNKNOWN INDICATION
     Dosage: 10 MG, UNK
     Dates: end: 20110804
  5. LISINOPRIL [Concomitant]
     Indication: PRODUCT USED FOR UNKNOWN INDICATION
     Dosage: 40 MG, QD
     Dates: end: 20110804
  6. LOPRESSOR [Concomitant]
     Dosage: 50 MG, 1/2 BID
  7. METFORMIN HCL [Concomitant]
     Indication: PRODUCT USED FOR UNKNOWN INDICATION
     Dosage: 1000 MG, BID
     Dates: end: 20110804
  8. OMEGA 3                            /00931501/ [Concomitant]
     Indication: PRODUCT USED FOR UNKNOWN INDICATION
     Dosage: 2000 MG, UNK
  9. NIASPAN [Concomitant]
     Indication: PRODUCT USED FOR UNKNOWN INDICATION
     Dosage: 1000 MG, QD
     Dates: end: 20110804
  10. VICTOZA [Suspect]
     Indication: TYPE 2 DIABETES MELLITUS
     Dosage: 1.2 MG, QD
     Route: 058
     Dates: start: 20110330, end: 20110719
  11. VICTOZA [Suspect]
     Indication: WEIGHT DECREASED
  12. M.V.I. [Concomitant]
     Indication: PRODUCT USED FOR UNKNOWN INDICATION
     Dosage: UNK
  13. FENOFIBRATE [Concomitant]
     Indication: PRODUCT USED FOR UNKNOWN INDICATION
     Dosage: 160 MG, UNK
     Dates: end: 20110804
  14. AMARYL [Concomitant]
     Dosage: 2 MG, QD
     Dates: start: 20110804
  15. OXYCODONE [Concomitant]
     Indication: PRODUCT USED FOR UNKNOWN INDICATION
     Dosage: UNK
     Dates: start: 20110804
  16. HYDROCHLOROTHIAZIDE [Concomitant]
     Indication: PRODUCT USED FOR UNKNOWN INDICATION
     Dosage: 25 MG, QD
     Dates: end: 20110804
  17. AMARYL [Concomitant]
     Indication: PRODUCT USED FOR UNKNOWN INDICATION
     Dosage: 4 MG, QD
     Dates: end: 20110804
  18. OMEPRAZOLE [Concomitant]
     Indication: PRODUCT USED FOR UNKNOWN INDICATION
     Dosage: UNK
     Dates: start: 20110804

REACTIONS (8)
  - NAUSEA [None]
  - DEHYDRATION [None]
  - WEIGHT DECREASED [None]
  - DECREASED APPETITE [None]
  - DIARRHOEA [None]
  - DEEP VEIN THROMBOSIS [None]
  - PANCREATIC CARCINOMA METASTATIC [None]
  - PRESYNCOPE [None]
